FAERS Safety Report 5581866-9 (Version None)
Quarter: 2008Q1

REPORT INFORMATION
  Report Type: 
  Country: None (occurrence: None)
  Receive Date: 20080104
  Receipt Date: 20071226
  Transmission Date: 20080703
  Serious: Yes (Other)
  Sender: FDA-Public Use
  Company Number: JP-ELI_LILLY_AND_COMPANY-JP200712004819

PATIENT
  Sex: Female

DRUGS (5)
  1. CEFACLOR [Suspect]
     Indication: OTITIS MEDIA ACUTE
     Dosage: 210 MG, DAILY (1/D)
     Route: 048
     Dates: start: 20041025, end: 20041030
  2. VENETLIN [Concomitant]
     Route: 055
     Dates: start: 20041022, end: 20041026
  3. ASVERIN [Concomitant]
     Dates: start: 20041022, end: 20041026
  4. MUCOSOLATE [Concomitant]
     Dates: start: 20041022, end: 20041026
  5. PERIACTIN [Concomitant]
     Dates: start: 20041022, end: 20041026

REACTIONS (1)
  - HEPATITIS FULMINANT [None]
